FAERS Safety Report 5936744-X (Version None)
Quarter: 2008Q4

REPORT INFORMATION
  Report Type: 
  Country: None (occurrence: None)
  Receive Date: 20081029
  Receipt Date: 20081023
  Transmission Date: 20090506
  Serious: Yes (Other)
  Sender: FDA-Public Use
  Company Number: 035438

PATIENT
  Sex: Female

DRUGS (1)
  1. PLAN B [Suspect]
     Indication: CONTRACEPTION
     Dosage: 1 TABLET, Q12HR, ORAL
     Route: 048
     Dates: start: 20070705, end: 20070706

REACTIONS (9)
  - ABDOMINAL PAIN LOWER [None]
  - BREAST PAIN [None]
  - DRUG EXPOSURE DURING PREGNANCY [None]
  - ECTOPIC PREGNANCY [None]
  - FEELING ABNORMAL [None]
  - GENITAL HAEMORRHAGE [None]
  - NAUSEA [None]
  - UTERINE HAEMORRHAGE [None]
  - VULVOVAGINAL PAIN [None]
